FAERS Safety Report 4785622-0 (Version None)
Quarter: 2005Q4

REPORT INFORMATION
  Report Type: 
  Country: None (occurrence: None)
  Receive Date: 20051003
  Receipt Date: 20050906
  Transmission Date: 20060501
  Serious: Yes (Hospitalization)
  Sender: FDA-Public Use
  Company Number: JP-BOEHRINGER INGELHEIM PHARMACEUTICALS, INC.-2005-BP-15625NB

PATIENT
  Sex: Female
  Weight: 67.1 kg

DRUGS (12)
  1. MICARDIS [Suspect]
     Indication: HYPERTENSION
     Route: 048
     Dates: start: 20040414
  2. RENIVACE [Concomitant]
     Indication: HYPERTENSION
     Route: 048
     Dates: start: 20040414
  3. TENORMIN [Concomitant]
     Indication: HYPERTENSION
     Route: 048
     Dates: start: 20040414
  4. ADALAT [Concomitant]
     Indication: HYPERTENSION
     Route: 048
     Dates: start: 20040414, end: 20050329
  5. CARDENALIN [Concomitant]
     Indication: HYPERTENSION
     Route: 048
     Dates: start: 20040414
  6. DIGOSIN [Concomitant]
     Indication: CARDIAC FAILURE
     Route: 048
     Dates: start: 20040414, end: 20050329
  7. SOLANAX [Concomitant]
     Indication: DEPRESSION
     Route: 048
     Dates: start: 20040414
  8. GASTER D [Concomitant]
     Indication: PROPHYLAXIS
     Route: 048
     Dates: start: 20040414
  9. MAGLAX [Concomitant]
     Indication: CONSTIPATION
     Route: 048
     Dates: start: 20040414
  10. FLUITRAN [Concomitant]
     Indication: HYPERTENSION
     Route: 048
     Dates: start: 20050305
  11. SIMVASTATIN [Concomitant]
     Indication: HYPERLIPIDAEMIA
     Route: 048
     Dates: start: 20040924
  12. ALDOMET [Concomitant]
     Indication: HYPERTENSION
     Route: 048
     Dates: start: 20040204

REACTIONS (1)
  - PNEUMONIA [None]
